FAERS Safety Report 4928142-2 (Version None)
Quarter: 2006Q1

REPORT INFORMATION
  Report Type: 
  Country: None (occurrence: None)
  Receive Date: 20060223
  Receipt Date: 20060215
  Transmission Date: 20060701
  Serious: Yes (Hospitalization, Other)
  Sender: FDA-Public Use
  Company Number: HQWYE831416FEB06

PATIENT
  Age: 3 Year
  Sex: Male

DRUGS (2)
  1. ADVIL [Suspect]
     Indication: PYREXIA
     Dosage: ONE INTAKE (ONE DOSE FOR 15 KG) ORAL
     Route: 048
     Dates: start: 20060120, end: 20060120
  2. ACETAMINOPHEN [Concomitant]

REACTIONS (4)
  - BLOOD BILIRUBIN INCREASED [None]
  - BLOOD LACTATE DEHYDROGENASE INCREASED [None]
  - OTITIS MEDIA [None]
  - PNEUMONIA PNEUMOCOCCAL [None]
